FAERS Safety Report 7237740-5 (Version None)
Quarter: 2011Q1

REPORT INFORMATION
  Report Type: 
  Country: None (occurrence: None)
  Receive Date: 20110121
  Receipt Date: 20110118
  Transmission Date: 20110831
  Serious: Yes (Death, Other)
  Sender: FDA-Public Use
  Company Number: PHHY2011JP03766

PATIENT
  Age: 32 Year
  Sex: Female

DRUGS (2)
  1. CYCLOSPORINE [Suspect]
     Indication: STEM CELL TRANSPLANT
  2. CHEMOTHERAPEUTICS NOS [Concomitant]
     Indication: ACUTE MYELOID LEUKAEMIA

REACTIONS (7)
  - THROMBOCYTOPENIA [None]
  - POSTERIOR REVERSIBLE ENCEPHALOPATHY SYNDROME [None]
  - CONVULSION [None]
  - BLOOD PRESSURE INCREASED [None]
  - BRAIN OEDEMA [None]
  - SUBARACHNOID HAEMORRHAGE [None]
  - PNEUMONIA [None]
